FAERS Safety Report 5223850-0 (Version None)
Quarter: 2007Q1

REPORT INFORMATION
  Report Type: 
  Country: None (occurrence: None)
  Receive Date: 20070130
  Receipt Date: 20070118
  Transmission Date: 20070707
  Serious: Yes (Other)
  Sender: FDA-Public Use
  Company Number: PHBS2007JP01060

PATIENT
  Age: 75 Year
  Sex: Male

DRUGS (5)
  1. SANDIMMUNE [Suspect]
     Indication: HEPATITIS B
     Dosage: 0.25 MG/KG
     Route: 041
     Dates: start: 20070111, end: 20070115
  2. SOLU-MEDROL [Concomitant]
     Dosage: 1 G/D
     Route: 041
     Dates: start: 20061228, end: 20070115
  3. FERON [Concomitant]
     Route: 041
     Dates: start: 20061228, end: 20070112
  4. BARACLUDE [Concomitant]
     Dosage: 0.5 MG, UNK
     Route: 048
  5. PREDONINE [Concomitant]
     Dosage: 5 MG, UNK
     Route: 048
     Dates: start: 20070104, end: 20070116

REACTIONS (1)
  - BLOOD CREATINE PHOSPHOKINASE INCREASED [None]
